FAERS Safety Report 8904580 (Version 1)
Quarter: 2012Q4

REPORT INFORMATION
  Report Type: 
  Country: CA (occurrence: CA)
  Receive Date: 20121113
  Receipt Date: 20121113
  Transmission Date: 20130627
  Serious: Yes (Other)
  Sender: FDA-Public Use
  Company Number: PHBS2001CA05419

PATIENT
  Age: 74 Year
  Sex: Male

DRUGS (4)
  1. EXELON [Suspect]
     Indication: DEMENTIA ALZHEIMER^S TYPE
     Dosage: 1.5 mg, BID
     Route: 048
     Dates: start: 20010306
  2. EXELON [Suspect]
     Dosage: 4.5 mg, BID
     Route: 050
     Dates: start: 20010507
  3. RYTHMOL ^KNOLL^ [Concomitant]
     Dosage: 150 mg, BID
  4. ASA [Concomitant]
     Dosage: 325 mg, QD

REACTIONS (8)
  - Wrist fracture [Recovered/Resolved]
  - Swelling [Unknown]
  - Tenderness [Unknown]
  - Gait disturbance [Recovered/Resolved]
  - Insomnia [Recovered/Resolved]
  - Agitation [Recovered/Resolved]
  - Decreased appetite [Unknown]
  - Dizziness [Recovered/Resolved]
